FAERS Safety Report 15154141 (Version 1)
Quarter: 2018Q3

REPORT INFORMATION
  Report Type: Spontaneous
  Country: FR (occurrence: FR)
  Receive Date: 20180717
  Receipt Date: 20180717
  Transmission Date: 20181010
  Serious: Yes (Hospitalization)
  Sender: FDA-Public Use
  Company Number: FR-B. BRAUN MEDICAL INC.-2052230

PATIENT
  Age: 92 Year
  Sex: Female
  Weight: 49.6 kg

DRUGS (3)
  1. GLUCOSE [Suspect]
     Active Substance: DEXTROSE
     Route: 058
     Dates: start: 20180511, end: 20180617
  2. ESCITALOPRAM [Suspect]
     Active Substance: ESCITALOPRAM OXALATE
     Route: 048
     Dates: end: 20180517
  3. DEXTROSE INJECTIONS USP 0264?7510?00 0264?7510?20 [Suspect]
     Active Substance: DEXTROSE

REACTIONS (2)
  - Hyponatraemia [Recovered/Resolved]
  - Confusional state [Recovered/Resolved]

NARRATIVE: CASE EVENT DATE: 20180515
